FAERS Safety Report 13078554 (Version 2)
Quarter: 2017Q1

REPORT INFORMATION
  Report Type: Report from Study
  Country: DE (occurrence: DE)
  Receive Date: 20170102
  Receipt Date: 20170221
  Transmission Date: 20170428
  Serious: Yes (Death, Hospitalization)
  Sender: FDA-Public Use
  Company Number: DE-TEVA-725815GER

PATIENT
  Sex: Female

DRUGS (34)
  1. DULOXETINA [Concomitant]
     Active Substance: DULOXETINE
     Indication: DEPRESSION
  2. FOLSAEURE [Concomitant]
     Active Substance: FOLIC ACID
     Route: 048
     Dates: start: 20140621, end: 20140621
  3. TAZOBACTAM [Concomitant]
     Active Substance: TAZOBACTAM
     Dosage: 1500 MILLIGRAM DAILY;
     Route: 042
     Dates: start: 20161019
  4. ZOPICLONE [Concomitant]
     Active Substance: ZOPICLONE
     Indication: SLEEP DISORDER
     Dosage: 0-0-0-1 (7.5 MG)
  5. RITUXIMAB [Suspect]
     Active Substance: RITUXIMAB
     Indication: B-CELL LYMPHOMA
     Dosage: LAST DOSE PRIOR TO SAE: 12-OCT-2016 AND 27-OCT-2016
     Route: 042
     Dates: start: 20160926
  6. LENOGRASTIM [Concomitant]
     Active Substance: LENOGRASTIM
     Indication: B-CELL LYMPHOMA
     Dosage: 340000000 IU (INTERNATIONAL UNIT) DAILY;
     Dates: start: 20161019, end: 20161019
  7. COLECALCIFEROL [Concomitant]
     Active Substance: CHOLECALCIFEROL
     Dates: start: 20130524, end: 20130528
  8. COLECALCIFEROL [Concomitant]
     Active Substance: CHOLECALCIFEROL
     Dates: start: 20130613, end: 20130613
  9. SULFAMETHOXAZOLE/TRIMETHOPRIM [Concomitant]
     Active Substance: SULFAMETHOXAZOLE\TRIMETHOPRIM
     Dosage: 1-0-1, ONLY MON + THU
     Route: 048
  10. PANTOPRAZOL NATRIUM [Concomitant]
     Active Substance: PANTOPRAZOLE SODIUM
     Dosage: 40 MILLIGRAM DAILY;
  11. RITUXIMAB [Suspect]
     Active Substance: RITUXIMAB
     Route: 042
     Dates: start: 20140610
  12. RITUXIMAB [Suspect]
     Active Substance: RITUXIMAB
     Route: 042
     Dates: start: 20140701
  13. FILGRASTIM [Concomitant]
     Active Substance: FILGRASTIM
     Indication: B-CELL LYMPHOMA
     Dosage: 30000000 IU (INTERNATIONAL UNIT) DAILY;
     Route: 058
     Dates: start: 20161031, end: 20161107
  14. ENOXAPARIN SODIUM. [Concomitant]
     Active Substance: ENOXAPARIN SODIUM
     Indication: THROMBOSIS PROPHYLAXIS
     Dosage: 5 ML DAILY;
     Route: 058
     Dates: start: 20160907, end: 20160929
  15. ACICLOVIR [Concomitant]
     Active Substance: ACYCLOVIR
     Route: 048
  16. METOCLOPRAMIDE. [Concomitant]
     Active Substance: METOCLOPRAMIDE
     Indication: NAUSEA
  17. RITUXIMAB [Suspect]
     Active Substance: RITUXIMAB
     Route: 042
     Dates: start: 20140527
  18. PEGFILGRASTIM [Concomitant]
     Active Substance: PEGFILGRASTIM
     Dosage: LAST CYCLE PRIOR TO SAE: 12-OCT-2016
     Route: 058
     Dates: start: 20161014
  19. ALLOPURINOL. [Concomitant]
     Active Substance: ALLOPURINOL
     Route: 048
  20. MIRTAZAPINE. [Concomitant]
     Active Substance: MIRTAZAPINE
     Indication: DEPRESSION
     Dosage: 15 MILLIGRAM DAILY;
     Route: 048
     Dates: start: 20160901
  21. AMPHOTERICIN B. [Concomitant]
     Active Substance: AMPHOTERICIN B
     Dosage: 1 PIPETTE
     Route: 048
     Dates: start: 20161017
  22. RIVAROXABAN [Concomitant]
     Active Substance: RIVAROXABAN
     Indication: OEDEMA PERIPHERAL
     Dosage: 15 MILLIGRAM DAILY;
     Route: 048
     Dates: start: 20161012
  23. PIPERACILLIN/TANZOBACTAM [Concomitant]
     Indication: OROPHARYNGEAL PAIN
     Dosage: 12 GRAM DAILY;
     Route: 042
     Dates: start: 20161019
  24. LEVOFLOXACIN. [Concomitant]
     Active Substance: LEVOFLOXACIN
     Route: 048
     Dates: start: 20161017, end: 20161019
  25. PREDNISONE. [Suspect]
     Active Substance: PREDNISONE
     Indication: B-CELL LYMPHOMA
     Dosage: 100 MILLIGRAM DAILY; LAST CYCLE 28-OCT-2016
     Route: 048
     Dates: start: 20160907, end: 20161128
  26. PEGFILGRASTIM [Concomitant]
     Active Substance: PEGFILGRASTIM
     Indication: B-CELL LYMPHOMA
     Dosage: LAST CYCLE PRIOR TO SAE: 12-OCT-2016
     Route: 058
     Dates: start: 20161127
  27. COLECALCIFEROL [Concomitant]
     Active Substance: CHOLECALCIFEROL
     Indication: PROPHYLAXIS
     Dosage: 1-0-0, ONLY FRIDAY
     Route: 048
  28. MACROGOL [Concomitant]
     Active Substance: POLYETHYLENE GLYCOLS
     Indication: CONSTIPATION
     Dosage: 1-1-0 BAGS
  29. DOXORUBICIN [Suspect]
     Active Substance: DOXORUBICIN
     Indication: B-CELL LYMPHOMA
     Dosage: LAST CYCLE PRIOR TO SAE: 12-OCT-2016, LAST CYCLE 28-OCT-2016
     Route: 042
     Dates: start: 20160927, end: 20161124
  30. VINCRISTINE [Suspect]
     Active Substance: VINCRISTINE
     Indication: B-CELL LYMPHOMA
     Dosage: LAST CYCLE PRIOR TO SAE: 12-OCT-2016, LAST CYCLE 28-OCT-2016
     Route: 042
     Dates: start: 20160927, end: 20161124
  31. CYCLOPHOSPHAMID [Suspect]
     Active Substance: CYCLOPHOSPHAMIDE
     Indication: B-CELL LYMPHOMA
     Dosage: LAST CYCLE PRIOR TO SAE: 12-OCT-2016, LAST CYCLE 28-OCT-2016
     Route: 042
     Dates: start: 20160927, end: 20161124
  32. METOPROLOL SUCCINATE. [Concomitant]
     Active Substance: METOPROLOL SUCCINATE
     Indication: HYPERTENSION
     Dosage: 95 MILLIGRAM DAILY;
     Route: 048
     Dates: start: 20160901
  33. TORASEMID [Concomitant]
     Active Substance: TORSEMIDE
     Indication: CARDIAC FAILURE
     Dosage: 5 MG 2 TIMES A DAY FOR 41 DAYS, 20 MG ONCE A DAY
     Route: 048
     Dates: start: 20160901
  34. FOLSAEURE [Concomitant]
     Active Substance: FOLIC ACID
     Dosage: 1-0-0, ONLY MON + THU
     Route: 048

REACTIONS (10)
  - Weight decreased [Fatal]
  - Fatigue [Not Recovered/Not Resolved]
  - Thrombocytopenia [Recovered/Resolved]
  - Anaemia [Not Recovered/Not Resolved]
  - Dysphagia [Not Recovered/Not Resolved]
  - Hypokalaemia [Recovered/Resolved]
  - Lung infection [Fatal]
  - Leukopenia [Recovered/Resolved]
  - Constipation [Recovered/Resolved]
  - Dehydration [Recovered/Resolved]

NARRATIVE: CASE EVENT DATE: 201610
